FAERS Safety Report 17364817 (Version 2)
Quarter: 2020Q1

REPORT INFORMATION
  Report Type: Spontaneous
  Country: US (occurrence: US)
  Receive Date: 20200204
  Receipt Date: 20200204
  Transmission Date: 20200409
  Serious: No
  Sender: FDA-Public Use
  Company Number: US-JNJFOC-20200140094

PATIENT
  Sex: Female
  Weight: 90.8 kg

DRUGS (1)
  1. TYLENOL [Suspect]
     Active Substance: ACETAMINOPHEN
     Indication: ARTHRALGIA
     Dosage: TWICE A DAY PRODUCT DOSE OR QUANTITY: 2 CAPLETS
     Route: 048

REACTIONS (1)
  - Drug ineffective [Unknown]
